FAERS Safety Report 7714842-8 (Version None)
Quarter: 2011Q3

REPORT INFORMATION
  Report Type: 
  Country: None (occurrence: None)
  Receive Date: 20110829
  Receipt Date: 20110823
  Transmission Date: 20111222
  Serious: Yes (Death, Hospitalization)
  Sender: FDA-Public Use
  Company Number: US-ASTELLAS-2011US003640

PATIENT
  Sex: Female
  Weight: 56 kg

DRUGS (14)
  1. LEXAPRO [Concomitant]
     Indication: PRODUCT USED FOR UNKNOWN INDICATION
     Dosage: 10 MG, UID/QD
     Route: 065
  2. DIPHENOXYLATE HCL + ATROPINE SULFATE [Concomitant]
     Indication: PRODUCT USED FOR UNKNOWN INDICATION
     Dosage: 2.5-0.025 UNK
     Route: 065
  3. MORPHINE SULFATE [Concomitant]
     Indication: PRODUCT USED FOR UNKNOWN INDICATION
     Dosage: 15 MG, Q4H +  2 AT PM, UNK
     Route: 065
  4. NYSTATIN [Concomitant]
     Indication: PRODUCT USED FOR UNKNOWN INDICATION
     Dosage: 5-10ML UP TO 5X DAILY
     Route: 065
  5. ONDANSETRON [Concomitant]
     Indication: NAUSEA
     Dosage: 4 MG, PRN 1-2 TABS EVER 6-8 HOUR
     Route: 065
  6. PREDNISONE [Suspect]
     Indication: LUNG INFILTRATION
     Dosage: 40 MG, UID/QD
     Route: 065
  7. TRICOR [Concomitant]
     Indication: PRODUCT USED FOR UNKNOWN INDICATION
     Dosage: 145 MG, UID/QD
     Route: 065
  8. ERLOTINIB HYDROCHLORIDE [Suspect]
     Indication: LUNG CARCINOMA CELL TYPE UNSPECIFIED STAGE 0
     Dosage: 150 MG, UID/QD
     Route: 048
     Dates: start: 20110523, end: 20110601
  9. DOCETAXEL [Concomitant]
     Indication: LUNG ADENOCARCINOMA
     Dosage: UNK
     Route: 065
  10. ALPRAZOLAM [Concomitant]
     Indication: PRODUCT USED FOR UNKNOWN INDICATION
     Dosage: 400 MG, UID/QD
     Route: 065
  11. FLUCONAZOLE [Concomitant]
     Indication: PRODUCT USED FOR UNKNOWN INDICATION
     Dosage: 200 MG, UID/QD
     Route: 065
  12. AVELOX [Concomitant]
     Indication: LUNG INFILTRATION
     Dosage: 400 MG, UID/QD
     Route: 065
  13. PREDNISONE [Suspect]
     Dosage: 30 MG, UID/QD
     Route: 066
  14. PROCHLORPERAZINE MALEATE [Concomitant]
     Indication: NAUSEA
     Dosage: 5 MG, PRN
     Route: 048

REACTIONS (3)
  - COAGULOPATHY [None]
  - LUNG ADENOCARCINOMA METASTATIC [None]
  - HEPATIC FAILURE [None]
